FAERS Safety Report 8431878-2 (Version None)
Quarter: 2012Q2

REPORT INFORMATION
  Report Type: 
  Country: None (occurrence: None)
  Receive Date: 20120607
  Receipt Date: 20120607
  Transmission Date: 20120825
  Serious: Yes (Other)
  Sender: FDA-Public Use
  Company Number: None

PATIENT
  Sex: Female

DRUGS (1)
  1. SAPHRIS [Suspect]
     Indication: BIPOLAR DISORDER
     Dosage: 2 G DAILY, PO
     Route: 048
     Dates: start: 20120531, end: 20120605

REACTIONS (3)
  - FATIGUE [None]
  - LISTLESS [None]
  - DYSPNOEA [None]
